FAERS Safety Report 7141870-6 (Version None)
Quarter: 2010Q4

REPORT INFORMATION
  Report Type: 
  Country: None (occurrence: None)
  Receive Date: 20101207
  Receipt Date: 20101129
  Transmission Date: 20110411
  Serious: Yes (Other)
  Sender: FDA-Public Use
  Company Number: BE-ROCHE-745684

PATIENT

DRUGS (1)
  1. TRASTUZUMAB [Suspect]
     Route: 065

REACTIONS (1)
  - TRICUSPID VALVE INCOMPETENCE [None]
